FAERS Safety Report 5320854-4 (Version None)
Quarter: 2007Q2

REPORT INFORMATION
  Report Type: 
  Country: None (occurrence: None)
  Receive Date: 20070502
  Receipt Date: 20070416
  Transmission Date: 20071010
  Serious: Yes (Other)
  Sender: FDA-Public Use
  Company Number: 07-034

PATIENT
  Age: 54 Year
  Sex: Male
  Weight: 132.9039 kg

DRUGS (8)
  1. IBUPROFEN TABLETS [Suspect]
     Indication: HEADACHE
     Dates: start: 20070319, end: 20070319
  2. ACTIQ [Concomitant]
  3. ATIVAN [Concomitant]
  4. CYMBALTA [Concomitant]
  5. DOCUSATE [Concomitant]
  6. ROXICODONE [Concomitant]
  7. OXYCONTIN [Concomitant]
  8. METOPROLOL SUCCINATE [Concomitant]

REACTIONS (3)
  - MULTIPLE DRUG OVERDOSE INTENTIONAL [None]
  - SUICIDE ATTEMPT [None]
  - VOMITING [None]
